FAERS Safety Report 24762164 (Version 4)
Quarter: 2025Q1

REPORT INFORMATION
  Report Type: Report from Study
  Country: CN (occurrence: CN)
  Receive Date: 20241221
  Receipt Date: 20250121
  Transmission Date: 20250409
  Serious: Yes (Hospitalization, Other)
  Sender: GILEAD
  Company Number: CN-GILEAD-2024-0697114

PATIENT
  Age: 53 Year
  Sex: Female

DRUGS (10)
  1. SACITUZUMAB GOVITECAN-HZIY [Suspect]
     Active Substance: SACITUZUMAB GOVITECAN-HZIY
     Indication: Breast cancer
     Dosage: 500 MG, D1 Q3WK
     Route: 041
     Dates: start: 20231207
  2. SACITUZUMAB GOVITECAN-HZIY [Suspect]
     Active Substance: SACITUZUMAB GOVITECAN-HZIY
     Dosage: 500 MG, D8
     Route: 041
     Dates: start: 20231215
  3. SACITUZUMAB GOVITECAN-HZIY [Suspect]
     Active Substance: SACITUZUMAB GOVITECAN-HZIY
     Dosage: 500 MG, Q3WK [2ND-7TH CYCLE D1/D8]
     Route: 041
     Dates: start: 20240104, end: 20240517
  4. SACITUZUMAB GOVITECAN-HZIY [Suspect]
     Active Substance: SACITUZUMAB GOVITECAN-HZIY
     Dosage: 500 MG, Q3WK [08TH TO 11TH CYCLES, D1/D8]
     Route: 041
     Dates: start: 20240621, end: 20240921
  5. SACITUZUMAB GOVITECAN-HZIY [Suspect]
     Active Substance: SACITUZUMAB GOVITECAN-HZIY
     Dosage: 12TH CYCLE 500MG D1
     Route: 041
     Dates: start: 20241012, end: 20241019
  6. SACITUZUMAB GOVITECAN-HZIY [Suspect]
     Active Substance: SACITUZUMAB GOVITECAN-HZIY
     Dosage: 13TH CYCLE OF SACITUZUMAB GOVITECAN 500MG D8
     Route: 041
     Dates: start: 20241112, end: 20241119
  7. SACITUZUMAB GOVITECAN-HZIY [Suspect]
     Active Substance: SACITUZUMAB GOVITECAN-HZIY
     Dosage: 500 MG, Q3WK, D1, 14TH CYCLE
     Route: 041
     Dates: start: 20241210, end: 20241218
  8. SACITUZUMAB GOVITECAN-HZIY [Suspect]
     Active Substance: SACITUZUMAB GOVITECAN-HZIY
     Dosage: 15TH CYCLE, 500MG D1
     Route: 041
     Dates: start: 20250107
  9. PHOSPHOLIPID [Concomitant]
     Active Substance: PHOSPHOLIPID
  10. MAGNESIUM ISOGLYCYRRHIZINATE [Concomitant]
     Active Substance: MAGNESIUM ISOGLYCYRRHIZINATE
     Route: 048

REACTIONS (17)
  - Agranulocytosis [Unknown]
  - Bile duct stent insertion [Unknown]
  - Dilatation intrahepatic duct acquired [Unknown]
  - Pneumobilia [Unknown]
  - Breast cancer metastatic [Unknown]
  - Metastases to lymph nodes [Unknown]
  - Metastases to liver [Unknown]
  - Metastases to abdominal cavity [Unknown]
  - Vomiting [Recovered/Resolved]
  - Pyrexia [Recovered/Resolved]
  - Viral infection [Unknown]
  - Soft tissue disorder [Unknown]
  - Depressed mood [Unknown]
  - Decreased appetite [Recovered/Resolved]
  - Asthenia [Recovered/Resolved]
  - Discomfort [Recovered/Resolved]
  - Listless [Unknown]

NARRATIVE: CASE EVENT DATE: 20240613
